FAERS Safety Report 5419292-5 (Version None)
Quarter: 2007Q3

REPORT INFORMATION
  Report Type: 
  Country: None (occurrence: None)
  Receive Date: 20070820
  Receipt Date: 20070814
  Transmission Date: 20080115
  Serious: Yes (Hospitalization)
  Sender: FDA-Public Use
  Company Number: JP-SANOFI-SYNTHELABO-F01200701012

PATIENT
  Sex: Male

DRUGS (2)
  1. OXALIPLATIN [Suspect]
     Indication: GASTRIC CANCER
     Dosage: 163 MG
     Route: 042
     Dates: start: 20070801, end: 20070801
  2. TS-1 [Suspect]
     Dosage: 14 CONSECUTIVE DAYS EVERY 3 WEEKS
     Route: 048
     Dates: start: 20070801

REACTIONS (1)
  - BILIARY TRACT INFECTION [None]
